FAERS Safety Report 6322117-7 (Version None)
Quarter: 2009Q3

REPORT INFORMATION
  Report Type: 
  Country: None (occurrence: None)
  Receive Date: 20090821
  Receipt Date: 20090821
  Transmission Date: 20100115
  Serious: Yes (Other)
  Sender: FDA-Public Use
  Company Number: None

PATIENT
  Age: 24 Year
  Sex: Female
  Weight: 110.6777 kg

DRUGS (1)
  1. TIZANIDINE HCL [Suspect]
     Indication: TENSION HEADACHE
     Dosage: ONE 4MG TABLET ONCE A DAY PO  2-3 YEARS
     Route: 048

REACTIONS (1)
  - HALLUCINATION, VISUAL [None]
